FAERS Safety Report 9448935 (Version 3)
Quarter: 2013Q3

REPORT INFORMATION
  Report Type: Spontaneous
  Country: US (occurrence: US)
  Receive Date: 20130808
  Receipt Date: 20130919
  Transmission Date: 20140515
  Serious: Yes (Hospitalization)
  Sender: FDA-Public Use
  Company Number: US-BAYER-2013-095079

PATIENT
  Age: 23 Year
  Sex: Female
  Weight: 70.3 kg

DRUGS (2)
  1. BEYAZ [Suspect]
     Indication: CONTRACEPTION
     Dosage: UNK
     Dates: start: 20110405, end: 20110717
  2. YAZ [Suspect]
     Indication: CONTRACEPTION
     Dosage: UNK
     Dates: start: 20110311, end: 20110405

REACTIONS (5)
  - Deep vein thrombosis [None]
  - Injury [None]
  - Pain [None]
  - Pain [None]
  - Myalgia [None]
